FAERS Safety Report 13352217 (Version 1)
Quarter: 2017Q1

REPORT INFORMATION
  Report Type: Spontaneous
  Country: US (occurrence: US)
  Receive Date: 20170320
  Receipt Date: 20170320
  Transmission Date: 20170429
  Serious: No
  Sender: FDA-Public Use
  Company Number: US-SA-2016SA089681

PATIENT
  Age: 72 Year
  Sex: Female

DRUGS (4)
  1. NASACORT ALLERGY 24HR [Suspect]
     Active Substance: TRIAMCINOLONE ACETONIDE
     Indication: HYPERSENSITIVITY
     Dosage: 1 SPRAY IN EACH NOSTRIL ONCE DAILY
     Route: 045
  2. NASACORT ALLERGY 24HR [Suspect]
     Active Substance: TRIAMCINOLONE ACETONIDE
     Indication: HYPERSENSITIVITY
     Dosage: 2 SPRAYS IN EACH NOSTRIL ONCE DAILY OR 1 SPRAY IN THE MORNING AND AGAIN AT NIGHT.
     Route: 045
  3. CLARITIN [Concomitant]
     Active Substance: LORATADINE
     Route: 065
  4. NASACORT ALLERGY 24HR [Suspect]
     Active Substance: TRIAMCINOLONE ACETONIDE
     Indication: HYPERSENSITIVITY
     Dosage: 55 MICROGRAM SPRAY BOTTLE USED FOR YEARS
     Route: 045

REACTIONS (3)
  - Extra dose administered [Unknown]
  - Insomnia [Unknown]
  - Drug effect incomplete [Unknown]
